FAERS Safety Report 14337698 (Version 1)
Quarter: 2017Q4

REPORT INFORMATION
  Report Type: Report from Study
  Country: None (occurrence: BR)
  Receive Date: 20171229
  Receipt Date: 20171229
  Transmission Date: 20180321
  Serious: Yes (Hospitalization, Other)
  Sender: FDA-Public Use
  Company Number: BR-ABBVIE-17K-020-2207018-00

PATIENT
  Age: 16 Year
  Sex: Female
  Weight: 49 kg

DRUGS (1)
  1. HUMIRA [Suspect]
     Active Substance: ADALIMUMAB
     Indication: JUVENILE IDIOPATHIC ARTHRITIS
     Route: 058
     Dates: start: 20100101, end: 20171209

REACTIONS (7)
  - Limb injury [Recovering/Resolving]
  - Headache [Not Recovered/Not Resolved]
  - Road traffic accident [Recovered/Resolved]
  - Mobility decreased [Recovering/Resolving]
  - Brain oedema [Not Recovered/Not Resolved]
  - Cerebral haemorrhage [Recovered/Resolved]
  - Craniocerebral injury [Not Recovered/Not Resolved]

NARRATIVE: CASE EVENT DATE: 20171220
